FAERS Safety Report 5625887-6 (Version None)
Quarter: 2008Q1

REPORT INFORMATION
  Report Type: 
  Country: None (occurrence: None)
  Receive Date: 20080214
  Receipt Date: 20080207
  Transmission Date: 20080703
  Serious: Yes (Other)
  Sender: FDA-Public Use
  Company Number: JP-BAYER-200810079BYL

PATIENT
  Age: 64 Year
  Sex: Male

DRUGS (9)
  1. ASPIRIN [Suspect]
     Indication: ANTIPLATELET THERAPY
     Dosage: TOTAL DAILY DOSE: 100 MG  UNIT DOSE: 100 MG
     Route: 048
     Dates: start: 20070901
  2. LIPITOR [Suspect]
     Indication: LOW DENSITY LIPOPROTEIN INCREASED
     Dosage: TOTAL DAILY DOSE: 20 MG  UNIT DOSE: 20 MG
     Route: 048
     Dates: start: 20070901, end: 20071114
  3. LIPITOR [Suspect]
     Dosage: TOTAL DAILY DOSE: 10 MG  UNIT DOSE: 10 MG
     Route: 048
     Dates: start: 20071115, end: 20071116
  4. ARTIST [Suspect]
     Indication: CARDIAC FAILURE
     Dosage: TOTAL DAILY DOSE: 2.5 MG  UNIT DOSE: 2.5 MG
     Route: 048
     Dates: start: 20071101
  5. MAGLAX [Concomitant]
     Route: 048
     Dates: start: 20071012
  6. ZETIA [Concomitant]
     Dosage: TOTAL DAILY DOSE: 10 MG  UNIT DOSE: 10 MG
     Route: 048
     Dates: start: 20071116, end: 20071218
  7. ZETIA [Concomitant]
     Dosage: TOTAL DAILY DOSE: 5 MG  UNIT DOSE: 10 MG
     Route: 048
     Dates: start: 20071219
  8. TICLOPIDINE HCL [Concomitant]
     Indication: ANTIPLATELET THERAPY
     Dosage: TOTAL DAILY DOSE: 200 MG  UNIT DOSE: 100 MG
     Route: 048
     Dates: start: 20070901, end: 20070926
  9. PLETAL [Concomitant]
     Indication: ANTIPLATELET THERAPY
     Dosage: TOTAL DAILY DOSE: 200 MG  UNIT DOSE: 100 MG
     Route: 048
     Dates: start: 20070927, end: 20071003

REACTIONS (2)
  - LIVER DISORDER [None]
  - PAIN IN EXTREMITY [None]
